FAERS Safety Report 16437109 (Version 4)
Quarter: 2019Q3

REPORT INFORMATION
  Report Type: Report from Study
  Country: BR (occurrence: BR)
  Receive Date: 20190615
  Receipt Date: 20190930
  Transmission Date: 20191004
  Serious: Yes (Other)
  Sender: FDA-Public Use
  Company Number: PHHY2019BR133140

PATIENT
  Age: 44 Year
  Sex: Female
  Weight: 30 kg

DRUGS (4)
  1. KISQALI [Suspect]
     Active Substance: RIBOCICLIB
     Indication: PRODUCT USED FOR UNKNOWN INDICATION
     Dosage: 3 DF (600 MG), QD
     Route: 048
     Dates: start: 20190507
  2. LETROZOLE. [Suspect]
     Active Substance: LETROZOLE
     Indication: PRODUCT USED FOR UNKNOWN INDICATION
     Route: 048
  3. ZOLADEX [Suspect]
     Active Substance: GOSERELIN ACETATE
     Indication: PRODUCT USED FOR UNKNOWN INDICATION
     Route: 065
  4. KISQALI [Suspect]
     Active Substance: RIBOCICLIB
     Dosage: UNK, (AT NIGHT)
     Route: 048
     Dates: start: 201905

REACTIONS (31)
  - Menopausal disorder [Unknown]
  - Depressed mood [Unknown]
  - Muscle tightness [Unknown]
  - Dysphonia [Unknown]
  - Self esteem decreased [Unknown]
  - Upper limb fracture [Unknown]
  - Tremor [Unknown]
  - Muscle spasms [Unknown]
  - Anger [Unknown]
  - Depression [Unknown]
  - Metastases to lung [Unknown]
  - Nervousness [Unknown]
  - Decreased immune responsiveness [Unknown]
  - White blood cell count decreased [Recovered/Resolved]
  - Balance disorder [Unknown]
  - Tetany [Unknown]
  - Pain [Not Recovered/Not Resolved]
  - Fatigue [Recovered/Resolved]
  - Musculoskeletal stiffness [Unknown]
  - Blood potassium decreased [Unknown]
  - Blood electrolytes decreased [Unknown]
  - Musculoskeletal discomfort [Unknown]
  - Paraesthesia [Unknown]
  - Alopecia [Not Recovered/Not Resolved]
  - Feeling abnormal [Unknown]
  - Metastases to bone [Unknown]
  - Bone lesion [Unknown]
  - Agitation [Unknown]
  - Fracture [Unknown]
  - Muscle atrophy [Unknown]
  - Nausea [Recovered/Resolved]

NARRATIVE: CASE EVENT DATE: 201905
